FAERS Safety Report 9735114 (Version 1)
Quarter: 2013Q4

REPORT INFORMATION
  Report Type: Report from Study
  Country: ES (occurrence: ES)
  Receive Date: 20131206
  Receipt Date: 20131206
  Transmission Date: 20140711
  Serious: Yes (Death, Other)
  Sender: FDA-Public Use
  Company Number: ES-ROCHE-1312732

PATIENT
  Sex: 0

DRUGS (3)
  1. PEG-INTERFERON ALFA 2A [Suspect]
     Indication: HEPATITIS C
     Route: 065
  2. RIBAVIRIN [Suspect]
     Indication: HEPATITIS C
     Route: 065
  3. TELAPREVIR [Suspect]
     Indication: HEPATITIS C
     Route: 065

REACTIONS (8)
  - Death [Fatal]
  - Anaemia [Unknown]
  - Transplant rejection [Unknown]
  - Gastrointestinal disorder [Unknown]
  - Skin disorder [Unknown]
  - Blood disorder [Unknown]
  - Drug ineffective [Unknown]
  - Drug intolerance [Unknown]
